FAERS Safety Report 23263070 (Version 1)
Quarter: 2023Q4

REPORT INFORMATION
  Report Type: Spontaneous
  Country: US (occurrence: None)
  Receive Date: 20231205
  Receipt Date: 20231205
  Transmission Date: 20240110
  Serious: No
  Sender: FDA-Public Use
  Company Number: None

PATIENT
  Age: 59 Year
  Sex: Female

DRUGS (2)
  1. ADBRY [Suspect]
     Active Substance: TRALOKINUMAB-LDRM
     Indication: Psoriasis
     Dosage: FREQUENCY : EVERY OTHER WEEK;?
     Route: 058
     Dates: start: 20230920
  2. MOTRIN [Concomitant]

REACTIONS (5)
  - Ocular hyperaemia [None]
  - Eye irritation [None]
  - Eye pruritus [None]
  - Vision blurred [None]
  - Therapy interrupted [None]

NARRATIVE: CASE EVENT DATE: 20231109
